FAERS Safety Report 5334834-6 (Version None)
Quarter: 2007Q2

REPORT INFORMATION
  Report Type: 
  Country: None (occurrence: None)
  Receive Date: 20070525
  Receipt Date: 20070524
  Transmission Date: 20071010
  Serious: Yes (Hospitalization, Disabling, Other)
  Sender: FDA-Public Use
  Company Number: DE-ELI_LILLY_AND_COMPANY-DE200705006059

PATIENT
  Age: 56 Year
  Sex: Male

DRUGS (3)
  1. GEMZAR [Suspect]
     Indication: NON-SMALL CELL LUNG CANCER
     Dosage: UNK, UNK
     Route: 042
     Dates: start: 20060428, end: 20061004
  2. ALIMTA [Suspect]
     Indication: NON-SMALL CELL LUNG CANCER
     Dosage: UNK, UNK
     Route: 042
     Dates: start: 20061212, end: 20070509
  3. CISPLATIN [Concomitant]
     Dates: start: 20060428, end: 20061004

REACTIONS (7)
  - MUCOSAL HAEMORRHAGE [None]
  - NAUSEA [None]
  - PANCYTOPENIA [None]
  - PYREXIA [None]
  - RENAL FAILURE [None]
  - RENAL IMPAIRMENT [None]
  - VOMITING [None]
